FAERS Safety Report 8654052 (Version 3)
Quarter: 2013Q2

REPORT INFORMATION
  Report Type: Spontaneous
  Country: US (occurrence: US)
  Receive Date: 20120709
  Receipt Date: 20130618
  Transmission Date: 20140414
  Serious: Yes (Other)
  Sender: FDA-Public Use
  Company Number: US-PFIZER INC-2012161091

PATIENT
  Sex: Female

DRUGS (6)
  1. LIPITOR [Suspect]
     Dosage: UNK
  2. LIPITOR [Suspect]
     Dosage: 40 MG, 1X/DAY
     Route: 048
  3. LIPITOR [Suspect]
     Dosage: 20 MG, 1X/DAY
     Route: 048
  4. DOCUSATE [Concomitant]
     Dosage: UNK
  5. TYLENOL [Concomitant]
     Dosage: UNK
  6. MIRALAX [Concomitant]
     Dosage: UNK

REACTIONS (3)
  - Cerebrovascular accident [Unknown]
  - Facial bones fracture [Unknown]
  - Thrombosis [Unknown]
